FAERS Safety Report 4827635-6 (Version None)
Quarter: 2005Q4

REPORT INFORMATION
  Report Type: 
  Country: None (occurrence: None)
  Receive Date: 20051110
  Receipt Date: 20051026
  Transmission Date: 20060501
  Serious: Yes (Other)
  Sender: FDA-Public Use
  Company Number: S05-FRA-04645-01

PATIENT
  Age: 45 Year
  Sex: Female

DRUGS (1)
  1. SEROPLEX (ESCITALOPRAM) (ESCITALOPRAM) [Suspect]

REACTIONS (2)
  - KLEPTOMANIA [None]
  - LOSS OF EMPLOYMENT [None]
